FAERS Safety Report 4618623-3 (Version None)
Quarter: 2005Q1

REPORT INFORMATION
  Report Type: 
  Country: None (occurrence: None)
  Receive Date: 20050323
  Receipt Date: 20050303
  Transmission Date: 20050727
  Serious: Yes (Death)
  Sender: FDA-Public Use
  Company Number: USA050392304

PATIENT
  Age: 48 Year
  Sex: Male

DRUGS (1)
  1. XIGRIS [Suspect]
     Indication: CATHETER SEPSIS
     Dosage: 24 MG/KG/HR
     Dates: start: 20050301, end: 20050301

REACTIONS (1)
  - MYOCARDIAL INFARCTION [None]
